FAERS Safety Report 8492679 (Version 3)
Quarter: 2013Q2

REPORT INFORMATION
  Report Type: Report from Study
  Country: IT (occurrence: IT)
  Receive Date: 20120403
  Receipt Date: 20130403
  Transmission Date: 20140414
  Serious: Yes (Other)
  Sender: FDA-Public Use
  Company Number: IT-MILLENNIUM PHARMACEUTICALS, INC.-2012-02153

PATIENT
  Sex: 0

DRUGS (5)
  1. VELCADE [Suspect]
     Indication: PLASMA CELL MYELOMA
     Dosage: 2.08 MG, UNK
     Route: 042
     Dates: start: 20071026
  2. VELCADE [Suspect]
     Dosage: 1.12 MG, UNK
     Route: 042
     Dates: start: 20101123, end: 20111123
  3. THALIDOMIDE [Suspect]
     Indication: PLASMA CELL MYELOMA
     Dosage: 50 MG, UNK
     Route: 048
     Dates: start: 20071026, end: 20090721
  4. MELPHALAN [Suspect]
     Indication: PLASMA CELL MYELOMA
     Dosage: 14.4 MG, UNK
     Route: 048
     Dates: start: 20071026, end: 20080815
  5. PREDNISONE [Suspect]
     Indication: PLASMA CELL MYELOMA
     Dosage: 96 MG, UNK
     Route: 048
     Dates: start: 20071026, end: 20080815

REACTIONS (1)
  - Mastocytosis [Not Recovered/Not Resolved]
